FAERS Safety Report 7737505-1 (Version None)
Quarter: 2011Q3

REPORT INFORMATION
  Report Type: 
  Country: None (occurrence: None)
  Receive Date: 20110908
  Receipt Date: 20110905
  Transmission Date: 20111222
  Serious: Yes (Hospitalization)
  Sender: FDA-Public Use
  Company Number: IT-GLAXOSMITHKLINE-B0745562A

PATIENT
  Sex: Female

DRUGS (7)
  1. ACETAMINOPHEN [Concomitant]
     Dosage: 300MG PER DAY
     Route: 048
  2. TEMISARTAN [Concomitant]
     Route: 048
  3. ACETYLSALICYLIC ACID SRT [Concomitant]
     Dosage: 100MG PER DAY
     Route: 048
  4. GLIMEPIRIDE [Concomitant]
     Dosage: 2MG PER DAY
     Route: 048
  5. LANOXIN [Suspect]
     Indication: ATRIAL FIBRILLATION
     Dosage: .125MG PER DAY
     Route: 048
     Dates: start: 20110503, end: 20110810
  6. BISOPROLOL FUMARATE [Concomitant]
     Dosage: 3.75MG PER DAY
     Route: 048
  7. TIROXINA [Concomitant]
     Route: 048

REACTIONS (2)
  - TOXICITY TO VARIOUS AGENTS [None]
  - VERTIGO [None]
